FAERS Safety Report 5688091-1 (Version None)
Quarter: 2008Q1

REPORT INFORMATION
  Report Type: 
  Country: None (occurrence: None)
  Receive Date: 20080327
  Receipt Date: 20080317
  Transmission Date: 20080703
  Serious: Yes (Hospitalization, Other)
  Sender: FDA-Public Use
  Company Number: 2008-00712

PATIENT
  Age: 76 Year
  Sex: Male
  Weight: 70.5 kg

DRUGS (15)
  1. VELCADE [Suspect]
     Indication: MANTLE CELL LYMPHOMA
     Dosage: 1.30 MG/M2, IV BOLUS
     Route: 040
     Dates: start: 20080107, end: 20080221
  2. RITUXIMAB(RITUXIMAB) INJECTION, 375MG/M2 [Suspect]
     Indication: MANTLE CELL LYMPHOMA
     Dosage: 375.00 MG/M2, INTRAVENOUS
     Route: 042
     Dates: start: 20080107, end: 20080218
  3. CYCLOPHOSPHAMIDE [Suspect]
     Indication: MANTLE CELL LYMPHOMA
     Dosage: 300.00 MG/M2, INTRAVENOUS
     Route: 042
     Dates: start: 20080107, end: 20080221
  4. DOXORUBICIN HCL [Suspect]
     Indication: MANTLE CELL LYMPHOMA
     Dosage: 25.00 MG/M2, INTRAVENOUS
     Route: 042
     Dates: start: 20080107, end: 20080221
  5. VINCRISTINE [Suspect]
     Indication: MANTLE CELL LYMPHOMA
     Dosage: 1.00 MG, IV BOLUS
     Route: 040
     Dates: start: 20080107, end: 20080220
  6. DEXAMETHASONE TAB [Suspect]
     Indication: MANTLE CELL LYMPHOMA
     Dosage: 40.00 MG
     Dates: start: 20080107, end: 20080221
  7. NEULASTA [Suspect]
     Indication: MANTLE CELL LYMPHOMA
     Dosage: 6.00 MG, SUBCUTANEOUS
     Route: 058
     Dates: start: 20080107, end: 20080222
  8. PREVACID [Concomitant]
  9. BACTRIM [Concomitant]
  10. RANEXA [Concomitant]
  11. ATIVAN [Concomitant]
  12. CELEBREX [Concomitant]
  13. ASPIRIN [Concomitant]
  14. COMPAZINE (PROGHLORPERAZINE EDISYLATE) [Concomitant]
  15. IMDUR [Concomitant]

REACTIONS (12)
  - ANOREXIA [None]
  - CAECITIS [None]
  - COUGH [None]
  - DEHYDRATION [None]
  - HAEMOGLOBIN DECREASED [None]
  - HYPERGLYCAEMIA [None]
  - HYPOCALCAEMIA [None]
  - HYPOKALAEMIA [None]
  - HYPONATRAEMIA [None]
  - NEUTROPENIA [None]
  - PLATELET COUNT DECREASED [None]
  - WHITE BLOOD CELL COUNT DECREASED [None]
